FAERS Safety Report 4473937-5 (Version None)
Quarter: 2004Q4

REPORT INFORMATION
  Report Type: 
  Country: None (occurrence: None)
  Receive Date: 20041007
  Receipt Date: 20041007
  Transmission Date: 20050328
  Serious: No
  Sender: FDA-Public Use
  Company Number: None

PATIENT
  Age: 79 Year
  Sex: Female

DRUGS (1)
  1. LOVASTATIN [Suspect]
     Dosage: TABLETS

REACTIONS (5)
  - ABNORMAL DREAMS [None]
  - INSOMNIA [None]
  - MEDICATION ERROR [None]
  - NIGHT SWEATS [None]
  - PHARMACEUTICAL PRODUCT COMPLAINT [None]
